FAERS Safety Report 12567452 (Version 4)
Quarter: 2017Q3

REPORT INFORMATION
  Report Type: Spontaneous
  Country: US (occurrence: US)
  Receive Date: 20160718
  Receipt Date: 20170713
  Transmission Date: 20171127
  Serious: No
  Sender: FDA-Public Use
  Company Number: US-ASTELLAS-2016US024117

PATIENT
  Sex: Female

DRUGS (2)
  1. MYRBETRIQ [Suspect]
     Active Substance: MIRABEGRON
     Indication: NERVOUS SYSTEM DISORDER
     Route: 048
     Dates: start: 201605, end: 201605
  2. MYRBETRIQ [Suspect]
     Active Substance: MIRABEGRON
     Indication: NERVOUS SYSTEM DISORDER
     Route: 048
     Dates: start: 201603

REACTIONS (2)
  - Off label use [Unknown]
  - Drug ineffective [Unknown]

NARRATIVE: CASE EVENT DATE: 201512
